FAERS Safety Report 18967399 (Version 1)
Quarter: 2021Q1

REPORT INFORMATION
  Report Type: Spontaneous
  Country: US (occurrence: US)
  Receive Date: 20210303
  Receipt Date: 20210303
  Transmission Date: 20210420
  Serious: No
  Sender: FDA-Public Use
  Company Number: US-GLAXOSMITHKLINE-USCH2021009949

PATIENT

DRUGS (1)
  1. VOLTAREN ARTHRITIS PAIN [Suspect]
     Active Substance: DICLOFENAC SODIUM
     Indication: RHEUMATOID ARTHRITIS
     Dosage: UNKNOWN
     Route: 065

REACTIONS (4)
  - Off label use [Unknown]
  - Drug effective for unapproved indication [Unknown]
  - Product prescribing error [Unknown]
  - Product administered at inappropriate site [Unknown]
